FAERS Safety Report 19392374 (Version 1)
Quarter: 2021Q2

REPORT INFORMATION
  Report Type: Spontaneous
  Country: FR (occurrence: FR)
  Receive Date: 20210609
  Receipt Date: 20210609
  Transmission Date: 20210717
  Serious: Yes (Hospitalization, Other)
  Sender: FDA-Public Use
  Company Number: FR-BRISTOL-MYERS SQUIBB COMPANY-BMS-2021-053725

PATIENT
  Age: 66 Year
  Sex: Female

DRUGS (2)
  1. YERVOY [Suspect]
     Active Substance: IPILIMUMAB
     Indication: HEPATOCELLULAR CARCINOMA
     Dosage: 210 MILLIGRAM
     Route: 042
     Dates: start: 20201008, end: 20201210
  2. OPDIVO [Suspect]
     Active Substance: NIVOLUMAB
     Indication: HEPATOCELLULAR CARCINOMA
     Dosage: 70 MILLIGRAM
     Route: 042
     Dates: start: 20201008, end: 20210122

REACTIONS (6)
  - Myocarditis [Recovered/Resolved]
  - Demyelinating polyneuropathy [Not Recovered/Not Resolved]
  - Hypothyroidism [Recovered/Resolved]
  - Cholestasis [Recovering/Resolving]
  - Intentional product use issue [Unknown]
  - Hepatic cytolysis [Recovering/Resolving]

NARRATIVE: CASE EVENT DATE: 202010
